FAERS Safety Report 25765999 (Version 1)
Quarter: 2025Q3

REPORT INFORMATION
  Report Type: Spontaneous
  Country: US (occurrence: US)
  Receive Date: 20250905
  Receipt Date: 20250905
  Transmission Date: 20251020
  Serious: No
  Sender: DOMPE FARMACEUTICI
  Company Number: US-FARMAPROD-202407-2666

PATIENT
  Sex: Female

DRUGS (30)
  1. OXERVATE [Suspect]
     Active Substance: CENEGERMIN-BKBJ
     Indication: Neurotrophic keratopathy
     Route: 047
     Dates: start: 20240606
  2. OFLOXACIN [Concomitant]
     Active Substance: OFLOXACIN
  3. DIPHEN [Concomitant]
     Active Substance: ACETAMINOPHEN\BACITRACIN ZINC\BENZALKONIUM CHLORIDE\BENZOCAINE\BISMUTH SUBSALICYLATE\CALCIUM CARBONA
  4. COLCHICINE [Concomitant]
     Active Substance: COLCHICINE
  5. LORATADINE [Concomitant]
     Active Substance: LORATADINE
  6. FUROSEMIDE [Concomitant]
     Active Substance: FUROSEMIDE
  7. PANTOPRAZOLE SODIUM [Concomitant]
     Active Substance: PANTOPRAZOLE SODIUM
  8. LEVOTHYROXINE SODIUM [Concomitant]
     Active Substance: LEVOTHYROXINE SODIUM
  9. VITAMIN D-400 [Concomitant]
  10. VITAMIN B12 [Concomitant]
     Active Substance: CYANOCOBALAMIN
  11. OMEGA 3 [Concomitant]
     Active Substance: CAPSAICIN
  12. FISH OIL [Concomitant]
     Active Substance: FISH OIL
  13. GABAPENTIN [Concomitant]
     Active Substance: GABAPENTIN
  14. GABAPENTIN [Concomitant]
     Active Substance: GABAPENTIN
  15. OXYBUTYNIN CHLORIDE [Concomitant]
     Active Substance: OXYBUTYNIN CHLORIDE
  16. TIKOSYN [Concomitant]
     Active Substance: DOFETILIDE
  17. ELIQUIS [Concomitant]
     Active Substance: APIXABAN
  18. KLOR-CON M10 [Concomitant]
     Active Substance: POTASSIUM CHLORIDE
  19. STOOL SOFTENER (DOCUSATE) [Concomitant]
     Active Substance: DOCUSATE
  20. TIZANIDINE HYDROCHLORIDE [Concomitant]
     Active Substance: TIZANIDINE HYDROCHLORIDE
  21. BYSTOLIC [Concomitant]
     Active Substance: NEBIVOLOL HYDROCHLORIDE
  22. ATORVASTATIN CALCIUM [Concomitant]
     Active Substance: ATORVASTATIN CALCIUM
  23. ASPIRIN [Concomitant]
     Active Substance: ASPIRIN
  24. VALSARTAN [Concomitant]
     Active Substance: VALSARTAN
  25. LEVOCETIRIZINE DIHYDROCHLORIDE [Concomitant]
     Active Substance: LEVOCETIRIZINE DIHYDROCHLORIDE
  26. BRIMONIDINE TARTRATE [Concomitant]
     Active Substance: BRIMONIDINE TARTRATE
  27. SYSTANE COMPLETE [Concomitant]
     Active Substance: PROPYLENE GLYCOL
  28. ALLOPURINOL [Concomitant]
     Active Substance: ALLOPURINOL
  29. XIIDRA [Concomitant]
     Active Substance: LIFITEGRAST
  30. MAXITROL [Concomitant]
     Active Substance: DEXAMETHASONE\NEOMYCIN SULFATE\POLYMYXIN B SULFATE

REACTIONS (1)
  - Rash [Unknown]
